FAERS Safety Report 13123691 (Version 1)
Quarter: 2017Q1

REPORT INFORMATION
  Report Type: Other
  Country: OM (occurrence: OM)
  Receive Date: 20170117
  Receipt Date: 20170117
  Transmission Date: 20170428
  Serious: Yes (Other)
  Sender: FDA-Public Use
  Company Number: OM--2017-OM-000001

PATIENT
  Age: 55 Year
  Sex: Male

DRUGS (4)
  1. PIPERACILLIN/TAZOBACTAM [Concomitant]
     Active Substance: PIPERACILLIN SODIUM\TAZOBACTAM SODIUM
     Indication: ABSCESS DRAINAGE
     Route: 042
  2. DIAZEPAM. [Concomitant]
     Active Substance: DIAZEPAM
     Indication: ALCOHOL WITHDRAWAL SYNDROME
     Route: 048
  3. DOPAMINE [Concomitant]
     Active Substance: DOPAMINE\DOPAMINE HYDROCHLORIDE
     Indication: ABSCESS DRAINAGE
     Dosage: 5 ?G/KG/MINUTE
     Route: 042
  4. METRONIDAZOLE BRAND UNSPECIFIED (VIVIMED) [Suspect]
     Active Substance: METRONIDAZOLE
     Indication: ABSCESS DRAINAGE
     Route: 042

REACTIONS (4)
  - Hypokalaemia [Recovered/Resolved]
  - Ventricular tachycardia [None]
  - Torsade de pointes [Recovered/Resolved]
  - Alcohol withdrawal syndrome [None]
